FAERS Safety Report 13670025 (Version 5)
Quarter: 2019Q1

REPORT INFORMATION
  Report Type: Spontaneous
  Country: JP (occurrence: JP)
  Receive Date: 20170620
  Receipt Date: 20190219
  Transmission Date: 20190417
  Serious: Yes (Death, Other)
  Sender: FDA-Public Use
  Company Number: JP-BRISTOL-MYERS SQUIBB COMPANY-BMS-2017-054106

PATIENT
  Age: 61 Year
  Sex: Male

DRUGS (1)
  1. OPDIVO [Suspect]
     Active Substance: NIVOLUMAB
     Indication: NON-SMALL CELL LUNG CANCER RECURRENT
     Dosage: 150 MG, UNK
     Route: 041
     Dates: start: 20160804, end: 20161114

REACTIONS (2)
  - Haemoptysis [Fatal]
  - Pneumonia [Fatal]

NARRATIVE: CASE EVENT DATE: 20161122
